FAERS Safety Report 9980295 (Version 1)
Quarter: 2014Q1

REPORT INFORMATION
  Report Type: Report from Study
  Country: US (occurrence: US)
  Receive Date: 20140307
  Receipt Date: 20140307
  Transmission Date: 20141002
  Serious: No
  Sender: FDA-Public Use
  Company Number: US-ABBVIE-13P-163-1174610-00

PATIENT
  Age: 30 Year
  Sex: Male

DRUGS (3)
  1. HUMIRA [Suspect]
     Indication: CROHN^S DISEASE
     Dates: start: 20131029, end: 20131029
  2. HUMIRA [Suspect]
     Dates: start: 20131112, end: 20131112
  3. OMEPRAZOLE [Concomitant]
     Indication: DYSPEPSIA

REACTIONS (8)
  - Hypoaesthesia [Recovering/Resolving]
  - Rash [Not Recovered/Not Resolved]
  - Rash papular [Not Recovered/Not Resolved]
  - Rash erythematous [Not Recovered/Not Resolved]
  - Rash pruritic [Recovering/Resolving]
  - Rash [Not Recovered/Not Resolved]
  - Paraesthesia [Recovering/Resolving]
  - Rash pustular [Not Recovered/Not Resolved]
